FAERS Safety Report 9838188 (Version 2)
Quarter: 2014Q1

REPORT INFORMATION
  Report Type: Spontaneous
  Country: FI (occurrence: FI)
  Receive Date: 20140123
  Receipt Date: 20140204
  Transmission Date: 20141002
  Serious: Yes (Other)
  Sender: FDA-Public Use
  Company Number: FI-WATSON-2014-00321

PATIENT
  Age: 73 Year
  Sex: 0

DRUGS (16)
  1. AMLODIPIN ACTAVIS [Suspect]
     Indication: HYPERTENSION
     Dosage: 10 MG, DAILY
     Route: 048
     Dates: start: 20131011, end: 20131228
  2. LOSATRIX [Suspect]
     Indication: HYPERTENSION
     Dosage: 50 MG, DAILY
     Route: 048
     Dates: start: 20091208, end: 20131229
  3. EMCONCOR CHF [Concomitant]
     Indication: CORONARY ARTERY DISEASE
     Dosage: 2.5 MG, DAILY
     Route: 065
     Dates: start: 20130114
  4. PRIMASPAN [Concomitant]
     Indication: CORONARY ARTERY DISEASE
     Dosage: 100 MG, DAILY
     Route: 065
     Dates: start: 20131011
  5. SERETIDE [Concomitant]
     Indication: ASTHMA
     Dosage: 50/500 MIKROG/1 DF, BID
     Route: 045
     Dates: start: 20100614
  6. DIFORMIN [Concomitant]
     Indication: TYPE 2 DIABETES MELLITUS
     Dosage: 500 MG, BID
     Route: 065
     Dates: start: 20130302
  7. CRESTOR [Concomitant]
     Indication: HYPERCHOLESTEROLAEMIA
     Dosage: 20 MG, DAILY
     Route: 065
     Dates: start: 20130114
  8. FLIXONASE [Concomitant]
     Indication: ASTHMA
     Dosage: 50 MICROGRAMS 2 DF, DAILY
     Route: 045
     Dates: start: 20100726
  9. DINIT [Concomitant]
     Indication: CORONARY ARTERY DISEASE
     Dosage: 1.25 MG, DAILY
     Route: 045
     Dates: start: 20131011
  10. NITRO                              /00003201/ [Concomitant]
     Indication: CORONARY ARTERY DISEASE
     Dosage: 0.5 MG, UNK
     Route: 065
     Dates: start: 20100304
  11. VENTOLINE                          /00139501/ [Concomitant]
     Indication: ASTHMA
     Dosage: 200 MIKROG 1-2/DAY
     Route: 045
     Dates: start: 20100726
  12. TENOX                              /00393701/ [Concomitant]
     Indication: INSOMNIA
     Dosage: 20 MG, 0.5-1 IF NEEDED
     Route: 065
     Dates: start: 20130714
  13. BURANA [Concomitant]
     Indication: PAIN
     Dosage: 600 MG 1X3 IF NEEDED
     Route: 065
     Dates: start: 20130612
  14. PANADOL                            /00020001/ [Concomitant]
     Indication: PAIN
     Dosage: 1 G, 1X3 IF NEEDED
     Route: 065
     Dates: start: 20110608
  15. VOLTAREN                           /00372301/ [Concomitant]
     Indication: PAIN
     Dosage: 11.5 MG/G IF NEEDED X 2
     Route: 065
     Dates: start: 20110608
  16. MONTELUKAST [Concomitant]
     Indication: ASTHMA
     Dosage: 10 MG 1X1, UNK
     Route: 065
     Dates: start: 20100922, end: 20131228

REACTIONS (17)
  - Anaphylactic shock [Not Recovered/Not Resolved]
  - Generalised erythema [Not Recovered/Not Resolved]
  - Urticaria [Not Recovered/Not Resolved]
  - Pruritus [Not Recovered/Not Resolved]
  - Rash pustular [Not Recovered/Not Resolved]
  - Swollen tongue [Not Recovered/Not Resolved]
  - Swelling face [Not Recovered/Not Resolved]
  - Angioedema [Not Recovered/Not Resolved]
  - Nasal congestion [Not Recovered/Not Resolved]
  - Nasopharyngitis [Unknown]
  - Pyrexia [Unknown]
  - Rhinitis [Unknown]
  - Cough [Unknown]
  - Dyspnoea [Recovering/Resolving]
  - Hypersensitivity [Unknown]
  - Sinusitis [Recovering/Resolving]
  - Nasal polyps [Recovering/Resolving]
